FAERS Safety Report 10219325 (Version 1)
Quarter: 2014Q2

REPORT INFORMATION
  Report Type: Spontaneous
  Country: US (occurrence: None)
  Receive Date: 20140604
  Receipt Date: 20140604
  Transmission Date: 20141212
  Serious: Yes (Hospitalization)
  Sender: FDA-Public Use
  Company Number: None

PATIENT
  Age: 65 Year
  Sex: Female
  Weight: 113.6 kg

DRUGS (2)
  1. CARBOPLATIN [Suspect]
     Dates: start: 20131106, end: 20131218
  2. PACLITAXEL (TAXOL) [Suspect]
     Dates: start: 20131106, end: 20131218

REACTIONS (13)
  - Dyspnoea [None]
  - Cough [None]
  - Pulmonary congestion [None]
  - Pneumonia [None]
  - Respiratory distress [None]
  - Atelectasis [None]
  - Pleural effusion [None]
  - Toxic encephalopathy [None]
  - Delirium [None]
  - Malnutrition [None]
  - Oral candidiasis [None]
  - Mucosal inflammation [None]
  - Generalised oedema [None]
